FAERS Safety Report 6180587-1 (Version None)
Quarter: 2009Q2

REPORT INFORMATION
  Report Type: 
  Country: None (occurrence: None)
  Receive Date: 20090504
  Receipt Date: 20090504
  Transmission Date: 20091009
  Serious: Yes (Other)
  Sender: FDA-Public Use
  Company Number: None

PATIENT
  Sex: Male

DRUGS (1)
  1. OTRIVIN [Suspect]
     Dosage: SEVERAL TIMES A DAY

REACTIONS (3)
  - DRUG DEPENDENCE [None]
  - INSOMNIA [None]
  - INTENTIONAL DRUG MISUSE [None]
